FAERS Safety Report 12479668 (Version 2)
Quarter: 2016Q2

REPORT INFORMATION
  Report Type: Spontaneous
  Country: US (occurrence: US)
  Receive Date: 20160620
  Receipt Date: 20160629
  Transmission Date: 20160815
  Serious: No
  Sender: FDA-Public Use
  Company Number: US-PFIZER INC-2016293641

PATIENT
  Age: 34 Year
  Sex: Female
  Weight: 105 kg

DRUGS (1)
  1. PANTOPRAZOLE [Suspect]
     Active Substance: PANTOPRAZOLE SODIUM
     Dosage: UNK
     Route: 048
     Dates: start: 20160331, end: 201605

REACTIONS (3)
  - Gastric disorder [Unknown]
  - Condition aggravated [Unknown]
  - Drug ineffective [Unknown]
